FAERS Safety Report 7323777-4 (Version None)
Quarter: 2011Q1

REPORT INFORMATION
  Report Type: 
  Country: None (occurrence: None)
  Receive Date: 20110301
  Receipt Date: 20110223
  Transmission Date: 20110831
  Serious: Yes (Other)
  Sender: FDA-Public Use
  Company Number: JP-PFIZER INC-2011039814

PATIENT
  Age: 55 Year
  Sex: Male

DRUGS (7)
  1. FENTANYL CITRATE [Concomitant]
     Dosage: 200 UG, UNK
  2. METHYLPREDNISOLONE SODIUM SUCCINATE [Suspect]
     Indication: SURGERY
     Dosage: 500 MG, SINGLE
  3. CEFAZOLIN SODIUM [Suspect]
     Indication: SURGERY
     Dosage: 1 G, SINGLE
  4. SEVOFLURANE [Concomitant]
  5. ATROPINE SULFATE [Concomitant]
     Indication: ANAESTHESIA
     Dosage: 0.5 MG, UNK
  6. VECURONIUM BROMIDE [Concomitant]
     Indication: ANAESTHESIA
     Dosage: 10 MG, UNK
  7. PROPOFOL [Concomitant]
     Indication: ANAESTHESIA
     Dosage: 100 MG, UNK

REACTIONS (3)
  - PULMONARY OEDEMA [None]
  - CARDIAC ARREST [None]
  - ANAPHYLACTIC SHOCK [None]
